FAERS Safety Report 4909936-6 (Version None)
Quarter: 2006Q1

REPORT INFORMATION
  Report Type: 
  Country: None (occurrence: None)
  Receive Date: 20060208
  Receipt Date: 20060131
  Transmission Date: 20060701
  Serious: Yes (Life-Threatening, Hospitalization, Disabling)
  Sender: FDA-Public Use
  Company Number: 2006007677

PATIENT
  Sex: Male

DRUGS (1)
  1. ATARAX [Suspect]
     Indication: PSYCHOTIC DISORDER
     Dosage: (1 IN 1 D)
     Dates: start: 20000101, end: 20050101

REACTIONS (12)
  - DEPRESSED LEVEL OF CONSCIOUSNESS [None]
  - FEELING ABNORMAL [None]
  - FUNGAL INFECTION [None]
  - GYNAECOMASTIA [None]
  - HORMONE LEVEL ABNORMAL [None]
  - IMMUNE SYSTEM DISORDER [None]
  - INFLAMMATION [None]
  - NIPPLE DISORDER [None]
  - PSYCHOMOTOR HYPERACTIVITY [None]
  - SPEECH DISORDER [None]
  - THINKING ABNORMAL [None]
  - VISION BLURRED [None]
